FAERS Safety Report 9546527 (Version 1)
Quarter: 2013Q3

REPORT INFORMATION
  Report Type: Spontaneous
  Country: US (occurrence: US)
  Receive Date: 20130923
  Receipt Date: 20130923
  Transmission Date: 20140515
  Serious: Yes (Hospitalization, Other)
  Sender: FDA-Public Use
  Company Number: US-RB-058569-13

PATIENT
  Age: 52 Year
  Sex: Male

DRUGS (1)
  1. SUBOXONE FILM [Suspect]
     Indication: DRUG DEPENDENCE
     Dosage: SUBOXONE FILM
     Route: 060
     Dates: start: 2011

REACTIONS (5)
  - Pruritus [Not Recovered/Not Resolved]
  - Exfoliative rash [Not Recovered/Not Resolved]
  - Wound secretion [Not Recovered/Not Resolved]
  - Femur fracture [Recovered/Resolved]
  - Drug withdrawal syndrome [Recovered/Resolved]
